FAERS Safety Report 7371233-X (Version None)
Quarter: 2011Q1

REPORT INFORMATION
  Report Type: 
  Country: None (occurrence: None)
  Receive Date: 20110324
  Receipt Date: 20110314
  Transmission Date: 20110831
  Serious: Yes (Hospitalization, Other)
  Sender: FDA-Public Use
  Company Number: KR-JNJFOC-20110307110

PATIENT
  Age: 50 Year
  Sex: Female

DRUGS (3)
  1. DURAGESIC-100 [Suspect]
     Route: 062
  2. DURAGESIC-100 [Suspect]
     Dosage: 1-2 PATCHES
     Route: 062
  3. DURAGESIC-100 [Suspect]
     Indication: CANCER PAIN
     Dosage: 12.5UG/HR + 12.5UG/HR
     Route: 062

REACTIONS (8)
  - DYSPNOEA [None]
  - WEIGHT DECREASED [None]
  - WRONG TECHNIQUE IN DRUG USAGE PROCESS [None]
  - ASTHENIA [None]
  - TREATMENT NONCOMPLIANCE [None]
  - ASTHENOPIA [None]
  - OXYGEN SATURATION DECREASED [None]
  - DRUG INEFFECTIVE [None]
